FAERS Safety Report 10712901 (Version 1)
Quarter: 2015Q1

REPORT INFORMATION
  Report Type: Spontaneous
  Country: US (occurrence: None)
  Receive Date: 20150112
  Receipt Date: 20150112
  Transmission Date: 20150721
  Serious: No
  Sender: FDA-Public Use
  Company Number: None

PATIENT
  Age: 49 Year
  Sex: Male
  Weight: 54.43 kg

DRUGS (3)
  1. ESCITALOPRAM OXALATE. [Suspect]
     Active Substance: ESCITALOPRAM OXALATE
     Indication: ANXIETY
     Dosage: ONE PILL A DAY?ONCE DAILY?TAKEN BY MOUTH
     Route: 048
     Dates: start: 20140902, end: 20140920
  2. ESCITALOPRAM OXALATE. [Suspect]
     Active Substance: ESCITALOPRAM OXALATE
     Indication: PANIC ATTACK
     Dosage: ONE PILL A DAY?ONCE DAILY?TAKEN BY MOUTH
     Route: 048
     Dates: start: 20140902, end: 20140920
  3. ESCITALOPRAM OXALATE. [Suspect]
     Active Substance: ESCITALOPRAM OXALATE
     Indication: DEPRESSION
     Dosage: ONE PILL A DAY?ONCE DAILY?TAKEN BY MOUTH
     Route: 048
     Dates: start: 20140902, end: 20140920

REACTIONS (5)
  - Gastrointestinal disorder [None]
  - Panic attack [None]
  - Drug ineffective [None]
  - Product substitution issue [None]
  - Headache [None]

NARRATIVE: CASE EVENT DATE: 20140902
